FAERS Safety Report 13994222 (Version 1)
Quarter: 2017Q3

REPORT INFORMATION
  Report Type: Spontaneous
  Country: US (occurrence: US)
  Receive Date: 20170920
  Receipt Date: 20170920
  Transmission Date: 20171128
  Serious: No
  Sender: FDA-Public Use
  Company Number: None

PATIENT
  Age: 38 Year
  Sex: Female
  Weight: 67.5 kg

DRUGS (1)
  1. ATIVAN [Suspect]
     Active Substance: LORAZEPAM
     Indication: INSOMNIA
     Dosage: ?          QUANTITY:1 TABLET(S);?
     Route: 048

REACTIONS (10)
  - Aggression [None]
  - Legal problem [None]
  - Abnormal behaviour [None]
  - Screaming [None]
  - Insomnia [None]
  - Alcohol use [None]
  - Loss of consciousness [None]
  - Road traffic accident [None]
  - Hallucinations, mixed [None]
  - Fear [None]

NARRATIVE: CASE EVENT DATE: 20170917
